FAERS Safety Report 5480526-2 (Version None)
Quarter: 2007Q4

REPORT INFORMATION
  Report Type: 
  Country: None (occurrence: None)
  Receive Date: 20071009
  Receipt Date: 20070928
  Transmission Date: 20080405
  Serious: Yes (Hospitalization)
  Sender: FDA-Public Use
  Company Number: DE-BAXTER-2007BH007171

PATIENT
  Age: 3 Year
  Sex: Female
  Weight: 12 kg

DRUGS (1)
  1. LACTATED RINGER'S [Suspect]
     Indication: SURGERY
     Route: 065
     Dates: start: 20070727, end: 20070727

REACTIONS (4)
  - APATHY [None]
  - HAEMATEMESIS [None]
  - OEDEMA MOUTH [None]
  - SWOLLEN TONGUE [None]
